FAERS Safety Report 8915960 (Version 2)
Quarter: 2012Q4

REPORT INFORMATION
  Report Type: 
  Country: KW (occurrence: KW)
  Receive Date: 20121119
  Receipt Date: 20121123
  Transmission Date: 20130627
  Serious: Yes (Death, Hospitalization)
  Sender: FDA-Public Use
  Company Number: KW-JNJFOC-20121106877

PATIENT
  Age: 38 Year
  Sex: Female

DRUGS (1)
  1. EVRA [Suspect]
     Indication: CONTRACEPTION
     Dosage: start date of the drug- 2 weeks before 10-OCT-2012 (hospital admission date)
     Route: 062

REACTIONS (2)
  - Hepatitis fulminant [Fatal]
  - Hepatic function abnormal [Fatal]
